FAERS Safety Report 12140805 (Version 1)
Quarter: 2016Q1

REPORT INFORMATION
  Report Type: Spontaneous
  Country: US (occurrence: US)
  Receive Date: 20160303
  Receipt Date: 20160303
  Transmission Date: 20160526
  Serious: Yes (Hospitalization)
  Sender: FDA-Public Use
  Company Number: US-MYLANLABS-2016M1009015

PATIENT

DRUGS (5)
  1. DACLIZUMAB [Suspect]
     Active Substance: DACLIZUMAB
     Indication: LANGERHANS^ CELL HISTIOCYTOSIS
     Dosage: TWO INFUSIONS AT DAY 0 AND DAY 4
     Route: 065
  2. MERCAPTOPURINE. [Suspect]
     Active Substance: MERCAPTOPURINE
     Indication: LANGERHANS^ CELL HISTIOCYTOSIS
     Route: 065
  3. PREDNISONE. [Suspect]
     Active Substance: PREDNISONE
     Indication: LANGERHANS^ CELL HISTIOCYTOSIS
     Dosage: 5 DAYS PULSE PREDNISONE EVERY 3 WEEK FOR 4 MONTHS
     Route: 065
  4. VINBLASTINE [Suspect]
     Active Substance: VINBLASTINE
     Indication: LANGERHANS^ CELL HISTIOCYTOSIS
     Route: 065
  5. TACROLIMUS. [Suspect]
     Active Substance: TACROLIMUS
     Indication: IMMUNOSUPPRESSANT DRUG THERAPY
     Dosage: TROUGHS RANGING 10-15 NG/ML
     Route: 048

REACTIONS (1)
  - Graft versus host disease [Recovered/Resolved]
